FAERS Safety Report 5019950-0 (Version None)
Quarter: 2006Q2

REPORT INFORMATION
  Report Type: 
  Country: None (occurrence: None)
  Receive Date: 20060607
  Receipt Date: 20060224
  Transmission Date: 20061013
  Serious: Yes (Life-Threatening, Hospitalization, Other)
  Sender: FDA-Public Use
  Company Number: DE-AMGEN-UK170353

PATIENT
  Sex: Female
  Weight: 76 kg

DRUGS (12)
  1. KEPIVANCE [Suspect]
     Indication: MUCOSAL INFLAMMATION
     Route: 042
     Dates: start: 20051217, end: 20060103
  2. PANTOPRAZOLE [Concomitant]
     Route: 042
     Dates: start: 20051226
  3. CASPOFUNGIN [Concomitant]
     Route: 042
     Dates: start: 20051223, end: 20060126
  4. METRONIDAZOLE [Concomitant]
     Dates: start: 20051226, end: 20060103
  5. CIPROFLOXACIN [Concomitant]
     Route: 042
     Dates: start: 20051227, end: 20060103
  6. CO-TRIMOXAZOLE [Concomitant]
     Route: 042
     Dates: start: 20051222
  7. ACYCLOVIR [Concomitant]
     Route: 042
     Dates: start: 20051227, end: 20060118
  8. MORPHINE [Concomitant]
     Route: 042
     Dates: start: 20051227, end: 20060124
  9. CYCLOSPORINE [Concomitant]
     Route: 042
     Dates: start: 20051229
  10. CYCLOPHOSPHAMIDE [Concomitant]
     Route: 042
     Dates: start: 20051225, end: 20051226
  11. METHOTREXATE [Concomitant]
     Route: 065
  12. METHOTREXATE [Concomitant]
     Route: 065

REACTIONS (12)
  - CYTOMEGALOVIRUS ANTIGEN POSITIVE [None]
  - DRUG TOXICITY [None]
  - FLUID RETENTION [None]
  - GRAFT VERSUS HOST DISEASE [None]
  - LUNG INFILTRATION [None]
  - MUCOSAL INFLAMMATION [None]
  - OEDEMA [None]
  - PNEUMONIA [None]
  - PULMONARY CONGESTION [None]
  - RESPIRATORY FAILURE [None]
  - THROMBOCYTOPENIA [None]
  - WEIGHT INCREASED [None]
